FAERS Safety Report 10061703 (Version 1)
Quarter: 2014Q2

REPORT INFORMATION
  Report Type: Spontaneous
  Country: US (occurrence: US)
  Receive Date: 20140407
  Receipt Date: 20140407
  Transmission Date: 20141212
  Serious: No
  Sender: FDA-Public Use
  Company Number: US-TARO-2013P1022206

PATIENT
  Age: 63 Year
  Sex: Female
  Weight: 71.22 kg

DRUGS (5)
  1. FLUOROURACIL TOPICAL CREAM USP 5% [Suspect]
     Indication: SKIN CANCER
     Route: 061
     Dates: start: 201310, end: 20131218
  2. FLAXSEED OIL [Concomitant]
  3. ASPIRIN [Concomitant]
  4. POTASSIUM [Concomitant]
  5. ^CHOLESTERIN^ POWDER [Concomitant]

REACTIONS (1)
  - Drug ineffective [Not Recovered/Not Resolved]
